FAERS Safety Report 13560698 (Version 2)
Quarter: 2017Q2

REPORT INFORMATION
  Report Type: Spontaneous
  Country: US (occurrence: US)
  Receive Date: 20170518
  Receipt Date: 20170523
  Transmission Date: 20170830
  Serious: No
  Sender: FDA-Public Use
  Company Number: US-PFIZER INC-2017214428

PATIENT
  Sex: Female
  Weight: 61 kg

DRUGS (3)
  1. SIMVASTATIN. [Concomitant]
     Active Substance: SIMVASTATIN
     Indication: BLOOD CHOLESTEROL INCREASED
     Dosage: 40 MG, 1X/DAY(ONCE A DAY)
     Dates: start: 201705
  2. PREMARIN [Suspect]
     Active Substance: ESTROGENS, CONJUGATED
     Indication: VULVOVAGINAL DRYNESS
     Dosage: 0.625 MG (INSERT 1 GRAM THREE TIMES A WEEK)
     Route: 067
  3. LEVOTHYROXINE. [Concomitant]
     Active Substance: LEVOTHYROXINE
     Indication: THYROID DISORDER
     Dosage: 112 UG, 1X/DAY

REACTIONS (5)
  - Vulvovaginal discomfort [Unknown]
  - Vaginal infection [Unknown]
  - Intentional product misuse [Unknown]
  - Urine abnormality [Unknown]
  - White blood cell count abnormal [Unknown]
